FAERS Safety Report 6791160-6 (Version None)
Quarter: 2010Q2

REPORT INFORMATION
  Report Type: 
  Country: None (occurrence: None)
  Receive Date: 20100623
  Receipt Date: 20100623
  Transmission Date: 20101027
  Serious: Yes (Hospitalization, Other)
  Sender: FDA-Public Use
  Company Number: None

PATIENT
  Age: 33 Year
  Sex: Female
  Weight: 63.5036 kg

DRUGS (2)
  1. BOTOX [Suspect]
     Indication: FIBROMYALGIA
     Dosage: 6 INJECTION SITES ONCE IM, ONE APPLICATION IN 2008
     Route: 030
     Dates: end: 20080101
  2. BOTOX [Suspect]
     Indication: MUSCLE SPASMS
     Dosage: 6 INJECTION SITES ONCE IM, ONE APPLICATION IN 2008
     Route: 030
     Dates: end: 20080101

REACTIONS (5)
  - FEELING ABNORMAL [None]
  - INSOMNIA [None]
  - INTERVERTEBRAL DISC PROTRUSION [None]
  - MUSCLE SPASMS [None]
  - NERVOUS SYSTEM DISORDER [None]
